FAERS Safety Report 10334341 (Version 2)
Quarter: 2014Q3

REPORT INFORMATION
  Report Type: Spontaneous
  Country: US (occurrence: US)
  Receive Date: 20140723
  Receipt Date: 20140723
  Transmission Date: 20150326
  Serious: No
  Sender: FDA-Public Use
  Company Number: US-UNITED THERAPEUTICS-UTC-046019

PATIENT
  Sex: Female
  Weight: 44.45 kg

DRUGS (2)
  1. REMODULIN [Suspect]
     Active Substance: TREPROSTINIL
     Dosage: 0.035 UG/KG/MIN
     Route: 041
     Dates: start: 20110421
  2. LETAIRIS [Concomitant]
     Active Substance: AMBRISENTAN

REACTIONS (6)
  - Nausea [Unknown]
  - Pulmonary congestion [Unknown]
  - Hypotension [Unknown]
  - Diarrhoea [Unknown]
  - Sinusitis [Unknown]
  - Vomiting [Unknown]
